FAERS Safety Report 4927407-8 (Version None)
Quarter: 2006Q1

REPORT INFORMATION
  Report Type: 
  Country: None (occurrence: None)
  Receive Date: 20060228
  Receipt Date: 20051129
  Transmission Date: 20060701
  Serious: No
  Sender: FDA-Public Use
  Company Number: US-GLAXOSMITHKLINE-A0583850A

PATIENT
  Age: 60 Year
  Sex: Female

DRUGS (3)
  1. IMITREX [Suspect]
     Indication: MIGRAINE
     Dosage: 1INJ AS REQUIRED
     Route: 058
     Dates: start: 19950101
  2. BUPROPION HCL [Concomitant]
  3. UNKNOWN MEDICATION [Concomitant]

REACTIONS (1)
  - INJECTION SITE URTICARIA [None]
